FAERS Safety Report 9520113 (Version 1)
Quarter: 2013Q3

REPORT INFORMATION
  Report Type: Report from Study
  Country: AR (occurrence: AR)
  Receive Date: 20130912
  Receipt Date: 20130912
  Transmission Date: 20140515
  Serious: Yes (Hospitalization)
  Sender: FDA-Public Use
  Company Number: PHHY2013AR100848

PATIENT
  Sex: 0

DRUGS (3)
  1. GALVUS MET [Suspect]
     Indication: DIABETES MELLITUS
     Dosage: 1 DF OR HALF DF (850/50 MG), DAILY
     Route: 048
     Dates: start: 201212
  2. DIOVAN D [Suspect]
     Indication: HYPERTENSION
     Dosage: 1 DF (160/25 MG), QD (IN MORNING)
     Route: 048
     Dates: start: 201212
  3. DIOVAN [Suspect]
     Indication: HYPERTENSION
     Dosage: 80 MG, QD (IN EVENING)
     Dates: start: 201212

REACTIONS (3)
  - General physical health deterioration [Recovered/Resolved]
  - Anaemia [Recovered/Resolved]
  - Bronchitis [Recovered/Resolved]
